FAERS Safety Report 16010646 (Version 1)
Quarter: 2019Q1

REPORT INFORMATION
  Report Type: Report from Study
  Country: IT (occurrence: IT)
  Receive Date: 20190227
  Receipt Date: 20190227
  Transmission Date: 20190418
  Serious: Yes (Other)
  Sender: FDA-Public Use
  Company Number: IT-BRISTOL-MYERS SQUIBB COMPANY-BMS-2019-016883

PATIENT
  Age: 61 Year
  Sex: Female

DRUGS (1)
  1. WARFARIN SODIUM. [Suspect]
     Active Substance: WARFARIN SODIUM
     Indication: EMBOLISM ARTERIAL
     Dosage: 45 MG, UNK ,DRUG INTERVAL DOSAGE UNIT NUMBER WAS REPORTED AS 1 WEEK
     Route: 048
     Dates: start: 20160919, end: 20190208

REACTIONS (2)
  - Wound haemorrhage [Unknown]
  - Groin abscess [Unknown]

NARRATIVE: CASE EVENT DATE: 20180712
